FAERS Safety Report 9338186 (Version 1)
Quarter: 2013Q2

REPORT INFORMATION
  Report Type: Spontaneous
  Country: US (occurrence: None)
  Receive Date: 20130605
  Receipt Date: 20130605
  Transmission Date: 20140414
  Serious: No
  Sender: FDA-Public Use
  Company Number: None

PATIENT
  Sex: Male
  Weight: 87.54 kg

DRUGS (2)
  1. VENLAFAXINE HCL ER [Suspect]
     Route: 048
     Dates: start: 20130219, end: 20130522
  2. VENLAFAXINE HCL ER [Suspect]
     Route: 048
     Dates: start: 20130219, end: 20130522

REACTIONS (2)
  - Drug ineffective [None]
  - Product substitution issue [None]
